FAERS Safety Report 19518453 (Version 2)
Quarter: 2021Q3

REPORT INFORMATION
  Report Type: Report from Study
  Country: None (occurrence: US)
  Receive Date: 20210712
  Receipt Date: 20210717
  Transmission Date: 20211014
  Serious: No
  Sender: FDA-Public Use
  Company Number: US-ABBVIE-21K-163-3972937-00

PATIENT
  Sex: Female
  Weight: 88.53 kg

DRUGS (9)
  1. URSODIOL. [Concomitant]
     Active Substance: URSODIOL
     Indication: PANCREATITIS
  2. MODERNA COVID?19 VACCINE [Concomitant]
     Active Substance: CX-024414
     Indication: COVID-19 IMMUNISATION
     Route: 030
     Dates: start: 20210313, end: 20210313
  3. MODERNA COVID?19 VACCINE [Concomitant]
     Active Substance: CX-024414
     Route: 030
     Dates: start: 202104, end: 202104
  4. VITAMIN D2 [Concomitant]
     Active Substance: ERGOCALCIFEROL
     Indication: SUPPLEMENTATION THERAPY
  5. AMLODIPINE [Concomitant]
     Active Substance: AMLODIPINE BESYLATE
     Indication: BLOOD PRESSURE MEASUREMENT
  6. OMEPRAZOLE. [Concomitant]
     Active Substance: OMEPRAZOLE
     Indication: GASTROOESOPHAGEAL REFLUX DISEASE
  7. HUMIRA [Suspect]
     Active Substance: ADALIMUMAB
     Indication: PSORIATIC ARTHROPATHY
     Route: 058
     Dates: start: 202005, end: 20210611
  8. LEVOTHYROXINE. [Concomitant]
     Active Substance: LEVOTHYROXINE
     Indication: THYROID DISORDER
  9. CREON [Concomitant]
     Active Substance: PANCRELIPASE AMYLASE\PANCRELIPASE LIPASE\PANCRELIPASE PROTEASE
     Indication: PANCREATITIS

REACTIONS (6)
  - Therapeutic response shortened [Unknown]
  - Arthritis [Unknown]
  - Musculoskeletal stiffness [Recovered/Resolved]
  - Peripheral swelling [Recovered/Resolved]
  - Skin plaque [Recovered/Resolved]
  - Pain in extremity [Recovered/Resolved]
